FAERS Safety Report 7203650-2 (Version None)
Quarter: 2010Q4

REPORT INFORMATION
  Report Type: 
  Country: None (occurrence: None)
  Receive Date: 20101230
  Receipt Date: 20101221
  Transmission Date: 20110411
  Serious: Yes (Other)
  Sender: FDA-Public Use
  Company Number: HR-ASTRAZENECA-2010SE60358

PATIENT
  Age: 65 Year
  Sex: Female

DRUGS (4)
  1. CRESTOR [Suspect]
     Indication: HYPERLIPIDAEMIA
     Route: 048
     Dates: start: 20100810, end: 20100901
  2. CRESTOR [Suspect]
     Route: 048
     Dates: start: 20100901, end: 20101115
  3. IRUMED [Concomitant]
     Indication: HYPERTENSION
     Route: 048
     Dates: start: 20090101
  4. CONCOR [Concomitant]
     Indication: HYPERTENSION
     Route: 048
     Dates: start: 20090101

REACTIONS (2)
  - DISTRACTIBILITY [None]
  - WEIGHT DECREASED [None]
